FAERS Safety Report 17357498 (Version 4)
Quarter: 2020Q1

REPORT INFORMATION
  Report Type: Report from Study
  Country: US (occurrence: US)
  Receive Date: 20200131
  Receipt Date: 20200312
  Transmission Date: 20200409
  Serious: Yes (Other)
  Sender: FDA-Public Use
  Company Number: NVSC2020US025369

PATIENT
  Sex: Female

DRUGS (3)
  1. PACLITAXEL. [Suspect]
     Active Substance: PACLITAXEL
     Indication: MALIGNANT PERITONEAL NEOPLASM
     Dosage: 70 MG/M2, QW, Q21 DAYS
     Route: 042
     Dates: start: 20191115
  2. INC424A [Suspect]
     Active Substance: RUXOLITINIB
     Indication: MALIGNANT PERITONEAL NEOPLASM
     Dosage: 10 MG, BID
     Route: 048
     Dates: start: 20191115
  3. CARBOPLATIN FOR INJECTION [Suspect]
     Active Substance: CARBOPLATIN
     Indication: MALIGNANT PERITONEAL NEOPLASM
     Dosage: AUC 5Q 21 DAYS
     Route: 042
     Dates: start: 20191115

REACTIONS (2)
  - Anaemia [Recovered/Resolved]
  - Anaemia [Recovered/Resolved]

NARRATIVE: CASE EVENT DATE: 20200123
